FAERS Safety Report 9999589 (Version 1)
Quarter: 2014Q1

REPORT INFORMATION
  Report Type: Spontaneous
  Country: US (occurrence: None)
  Receive Date: 20140311
  Receipt Date: 20140311
  Transmission Date: 20141002
  Serious: Yes (Other)
  Sender: FDA-Public Use
  Company Number: None

PATIENT
  Age: 51 Year
  Sex: Female

DRUGS (1)
  1. GILDESS [Suspect]
     Indication: ENDOMETRIOSIS
     Dosage: 1 TABLET
     Route: 048
     Dates: start: 20140222, end: 20140308

REACTIONS (4)
  - Haemorrhage [None]
  - Product substitution issue [None]
  - No therapeutic response [None]
  - Product quality issue [None]
